FAERS Safety Report 9691563 (Version 3)
Quarter: 2021Q4

REPORT INFORMATION
  Report Type: Spontaneous
  Country: GB (occurrence: GB)
  Receive Date: 20131115
  Receipt Date: 20211213
  Transmission Date: 20220303
  Serious: Yes (Hospitalization)
  Sender: FDA-Public Use
  Company Number: PHHY2013GB129459

PATIENT
  Age: 38 Year
  Sex: Female
  Weight: 68 kg

DRUGS (15)
  1. EPIRUBICIN [Suspect]
     Active Substance: EPIRUBICIN
     Indication: HER2 positive breast cancer
     Dosage: 100 MG/M2 (190 MG) (LAST DOSE PRIOR TO SAE: 25 JUN 2013)
     Route: 042
     Dates: start: 20130514, end: 20130625
  2. FLUOROURACIL [Suspect]
     Active Substance: FLUOROURACIL
     Indication: HER2 positive breast cancer
     Dosage: 900 MG, MOST RECENT DOSE PRIOR TO AE 25 JUN 2013
     Route: 042
     Dates: start: 20130514, end: 20130625
  3. DOCETAXEL [Suspect]
     Active Substance: DOCETAXEL
     Indication: HER2 positive breast cancer
     Dosage: 190 MG, TIW (EVERY THREE WEEK)
     Route: 042
     Dates: start: 20130716, end: 20130716
  4. CYCLOPHOSPHAMIDE [Suspect]
     Active Substance: CYCLOPHOSPHAMIDE
     Indication: HER2 positive breast cancer
     Dosage: 500 MG/M2 (900MG) LAST DOSE PRIOR TO SAE: 25 JUN 2013
     Route: 042
     Dates: start: 20130514, end: 20130625
  5. HERCEPTIN [Suspect]
     Active Substance: TRASTUZUMAB
     Indication: HER2 positive breast cancer
     Dosage: 546 MG, Q3W
     Route: 041
     Dates: start: 20130716, end: 20130716
  6. PERTUZUMAB [Suspect]
     Active Substance: PERTUZUMAB
     Indication: HER2 positive breast cancer
     Dosage: 546 MG, Q3W
     Route: 042
     Dates: start: 20130716
  7. PERTUZUMAB [Suspect]
     Active Substance: PERTUZUMAB
     Dosage: UNK (BLIND, EVERY 3 WEEKS)
     Route: 042
  8. DEXAMETHASONE [Concomitant]
     Active Substance: DEXAMETHASONE
     Indication: Product used for unknown indication
     Dosage: UNK
     Route: 065
     Dates: start: 20130514
  9. DEXAMETHASONE [Concomitant]
     Active Substance: DEXAMETHASONE
     Dosage: 40 MG
     Route: 065
     Dates: start: 20130715
  10. DEXAMETHASONE [Concomitant]
     Active Substance: DEXAMETHASONE
     Dosage: 40 MG
     Route: 065
     Dates: start: 20130715, end: 20130717
  11. DOMPERIDONE [Concomitant]
     Active Substance: DOMPERIDONE
     Indication: Product used for unknown indication
     Dosage: 80 MG
     Route: 065
     Dates: start: 20130514
  12. DOMPERIDONE [Concomitant]
     Active Substance: DOMPERIDONE
     Dosage: 40 MG
     Route: 065
     Dates: start: 20130715
  13. ONDANSETRON [Concomitant]
     Active Substance: ONDANSETRON
     Indication: Product used for unknown indication
     Dosage: 16 MG
     Route: 065
     Dates: start: 20130514
  14. ACETAMINOPHEN [Concomitant]
     Active Substance: ACETAMINOPHEN
     Indication: Product used for unknown indication
     Dosage: 4000 MG
     Route: 065
     Dates: start: 20130717
  15. PEGFILGRASTIM [Concomitant]
     Active Substance: PEGFILGRASTIM
     Indication: Product used for unknown indication
     Dosage: 6 MG
     Route: 065
     Dates: start: 20130515

REACTIONS (6)
  - Myalgia [Unknown]
  - Arthralgia [Unknown]
  - Fatigue [Recovered/Resolved]
  - Neutropenia [Recovered/Resolved]
  - Vomiting [Recovered/Resolved]
  - Off label use [Unknown]

NARRATIVE: CASE EVENT DATE: 20130626
